FAERS Safety Report 16694384 (Version 4)
Quarter: 2019Q4

REPORT INFORMATION
  Report Type: Spontaneous
  Country: US (occurrence: US)
  Receive Date: 20190812
  Receipt Date: 20191031
  Transmission Date: 20200122
  Serious: Yes (Other)
  Sender: FDA-Public Use
  Company Number: US-LEXICON PHARMACEUTICALS, INC-19-1606-00792

PATIENT
  Age: 73 Year
  Sex: Female

DRUGS (2)
  1. SOMATULINE [Concomitant]
     Active Substance: LANREOTIDE ACETATE
  2. TELOTRISTAT ETHYL [Suspect]
     Active Substance: TELOTRISTAT ETHYL
     Indication: CARCINOID TUMOUR OF THE SMALL BOWEL
     Route: 048
     Dates: start: 20190712

REACTIONS (8)
  - Vomiting [Unknown]
  - Headache [Not Recovered/Not Resolved]
  - Malaise [Unknown]
  - Allergy to vaccine [Not Recovered/Not Resolved]
  - Sinusitis [Recovering/Resolving]
  - Laryngitis [Recovering/Resolving]
  - Pneumonia [Recovering/Resolving]
  - Diarrhoea [Unknown]

NARRATIVE: CASE EVENT DATE: 2019
